FAERS Safety Report 5398589-1 (Version None)
Quarter: 2007Q3

REPORT INFORMATION
  Report Type: 
  Country: None (occurrence: None)
  Receive Date: 20070725
  Receipt Date: 20070713
  Transmission Date: 20080115
  Serious: Yes (Death, Hospitalization)
  Sender: FDA-Public Use
  Company Number: GXBR2007US01018

PATIENT
  Age: 68 Year
  Sex: Male
  Weight: 111.1 kg

DRUGS (8)
  1. NITROFURANTOIN [Suspect]
     Indication: CYSTITIS
     Dosage: 100 MG, BID, ORAL
     Route: 048
     Dates: start: 20070414, end: 20070417
  2. METOPROLOL TARTRATE [Concomitant]
  3. BENAZEPRIL (BENAZEPRIL) [Concomitant]
  4. BUSPIRONE HCL [Concomitant]
  5. ACTOS [Concomitant]
  6. EXELON [Concomitant]
  7. ZOCOR [Concomitant]
  8. BICITRA (CITRIC ACID, SODIUM CITRATE) [Concomitant]

REACTIONS (6)
  - BLOOD GLUCOSE INCREASED [None]
  - COAGULOPATHY [None]
  - DEEP VEIN THROMBOSIS [None]
  - PANCREATIC CARCINOMA [None]
  - PULMONARY EMBOLISM [None]
  - SUDDEN DEATH [None]
